FAERS Safety Report 9287669 (Version 2)
Quarter: 2013Q2

REPORT INFORMATION
  Report Type: Report from Study
  Country: CA (occurrence: CA)
  Receive Date: 20130514
  Receipt Date: 20130613
  Transmission Date: 20140414
  Serious: Yes (Other)
  Sender: FDA-Public Use
  Company Number: PHHY2013CA046879

PATIENT
  Sex: Female

DRUGS (8)
  1. CLOZARIL [Suspect]
     Indication: SCHIZOPHRENIA
     Dosage: UNK UKN, UNK
     Route: 048
     Dates: start: 20120927, end: 20130506
  2. INVEGA SUSTENNA [Concomitant]
     Dosage: UNK UKN, UNK
  3. LIPITOR [Concomitant]
     Dosage: UNK UKN, UNK
  4. ONGLYZA [Concomitant]
     Dosage: UNK UKN, UNK
  5. DIAMICRON [Concomitant]
     Dosage: UNK UKN, UNK
  6. PANTOLOC [Concomitant]
     Dosage: UNK UKN, UNK
  7. INDOLOL [Concomitant]
     Dosage: UNK UKN, UNK
  8. ALTACE [Concomitant]
     Dosage: UNK UKN, UNK

REACTIONS (8)
  - Metabolic disorder [Recovered/Resolved]
  - Hyperglycaemia [Recovered/Resolved]
  - Infection [Recovered/Resolved]
  - Hypoglycaemia [Recovered/Resolved]
  - Fatigue [Recovered/Resolved]
  - Asthenia [Recovered/Resolved]
  - Anxiety [Recovered/Resolved]
  - Hypertension [Recovered/Resolved]
